FAERS Safety Report 4928517-1 (Version None)
Quarter: 2006Q1

REPORT INFORMATION
  Report Type: 
  Country: None (occurrence: None)
  Receive Date: 20060223
  Receipt Date: 20060210
  Transmission Date: 20060701
  Serious: Yes (Other)
  Sender: FDA-Public Use
  Company Number: HQWYE790214FEB06

PATIENT
  Age: 24 Year
  Sex: Female

DRUGS (1)
  1. RAPAMUNE [Suspect]
     Dosage: 1 DOSAGE FORM 1X PER 1 DAY, ORAL
     Route: 048
     Dates: start: 20051027, end: 20051205

REACTIONS (3)
  - ACNE [None]
  - MENSTRUATION IRREGULAR [None]
  - URINARY TRACT INFECTION [None]
